FAERS Safety Report 13849937 (Version 1)
Quarter: 2017Q3

REPORT INFORMATION
  Report Type: Spontaneous
  Country: US (occurrence: US)
  Receive Date: 20170809
  Receipt Date: 20170809
  Transmission Date: 20171127
  Serious: No
  Sender: FDA-Public Use
  Company Number: US-BAUSCH-BL-2017-021705

PATIENT
  Age: 58 Year
  Sex: Female

DRUGS (3)
  1. RELISTOR [Suspect]
     Active Substance: METHYLNALTREXONE BROMIDE
     Route: 048
     Dates: start: 2017, end: 20170714
  2. RELISTOR [Suspect]
     Active Substance: METHYLNALTREXONE BROMIDE
     Indication: CONSTIPATION
     Dosage: IN EARLY JUNE 2017, 1 OR 2 TABLETS A DAY
     Route: 048
     Dates: start: 201706
  3. INSULIN [Concomitant]
     Active Substance: INSULIN NOS
     Indication: PRODUCT USED FOR UNKNOWN INDICATION

REACTIONS (4)
  - Drug dose omission [Unknown]
  - Pyrexia [Recovered/Resolved]
  - Papule [Not Recovered/Not Resolved]
  - Erythema [Not Recovered/Not Resolved]

NARRATIVE: CASE EVENT DATE: 201707
